FAERS Safety Report 7884423-4 (Version None)
Quarter: 2011Q4

REPORT INFORMATION
  Report Type: 
  Country: None (occurrence: None)
  Receive Date: 20111102
  Receipt Date: 20110901
  Transmission Date: 20120403
  Serious: No
  Sender: FDA-Public Use
  Company Number: US-ASTRAZENECA-2011SE52948

PATIENT
  Age: 71 Year
  Sex: Male

DRUGS (5)
  1. SYNTHROID [Concomitant]
  2. OXYCONTIN [Concomitant]
  3. ATENOLOL [Concomitant]
  4. NEXIUM [Concomitant]
  5. VANDETANIB [Suspect]
     Indication: THYROID CANCER
     Route: 048

REACTIONS (5)
  - NAUSEA [None]
  - MYALGIA [None]
  - RECTAL HAEMORRHAGE [None]
  - PAIN IN EXTREMITY [None]
  - ARTHRALGIA [None]
